FAERS Safety Report 21800408 (Version 1)
Quarter: 2022Q4

REPORT INFORMATION
  Report Type: Spontaneous
  Country: IT (occurrence: IT)
  Receive Date: 20221230
  Receipt Date: 20221230
  Transmission Date: 20230113
  Serious: Yes (Hospitalization)
  Sender: FDA-Public Use
  Company Number: None

PATIENT
  Age: 93 Year
  Sex: Male

DRUGS (5)
  1. ALLOPURINOL [Suspect]
     Active Substance: ALLOPURINOL
     Indication: Blood uric acid increased
     Dosage: 100 MG, Q24H (100 MG 1CP / DIE) (FARMACO SOSPESO, RECHALLENGE NON ESEGUITO)
     Route: 048
     Dates: start: 20220702, end: 20220710
  2. HYDROCHLOROTHIAZIDE\RAMIPRIL [Concomitant]
     Active Substance: HYDROCHLOROTHIAZIDE\RAMIPRIL
     Indication: Product used for unknown indication
     Dosage: 1 DOSAGE FORM, Q24H (5 PLUS 25 MG 1CP ORE 8.00)
     Route: 048
  3. XARELTO [Concomitant]
     Active Substance: RIVAROXABAN
     Indication: Atrial fibrillation
     Dosage: 15 MG, Q24H (15 MG 1CP ORE 12.00)
     Route: 048
  4. LEVOTHYROXINE SODIUM [Concomitant]
     Active Substance: LEVOTHYROXINE SODIUM
     Indication: Hypothyroidism
     Dosage: 1 DOSAGE FORM, Q24H (CONTINUATIVO 50 MG ORE 8.00 DAL LUNEDI AL VENERDI, 25 MG ORE 8.00 SABATO E DOME
     Route: 048
  5. ITRIN [Concomitant]
     Indication: Product used for unknown indication
     Dosage: 5 MG, Q24H (5 MG 1CP ORE 20.00)
     Route: 048

REACTIONS (2)
  - Erythema multiforme [Recovering/Resolving]
  - Erythema [Recovering/Resolving]

NARRATIVE: CASE EVENT DATE: 20220707
